FAERS Safety Report 25322710 (Version 1)
Quarter: 2025Q2

REPORT INFORMATION
  Report Type: Spontaneous
  Country: LV (occurrence: LV)
  Receive Date: 20250516
  Receipt Date: 20250516
  Transmission Date: 20250717
  Serious: Yes (Life-Threatening, Hospitalization, Other)
  Sender: Steriscience PTE
  Company Number: LV-STERISCIENCE B.V.-2025-ST-000897

PATIENT
  Age: 61 Year
  Sex: Male

DRUGS (4)
  1. AMPICILLIN AND SULBACTAM [Suspect]
     Active Substance: AMPICILLIN SODIUM\SULBACTAM SODIUM
     Indication: Septic shock
     Route: 065
  2. COLISTIN [Suspect]
     Active Substance: COLISTIN
     Indication: Septic shock
     Route: 065
  3. AMOXICILLIN\CLAVULANIC ACID [Concomitant]
     Active Substance: AMOXICILLIN\CLAVULANIC ACID
     Indication: Evidence based treatment
     Route: 065
  4. OXYGEN [Concomitant]
     Active Substance: OXYGEN
     Indication: Oxygen therapy

REACTIONS (3)
  - Respiratory failure [None]
  - Disease progression [Unknown]
  - Drug ineffective [Unknown]
